FAERS Safety Report 10219997 (Version 4)
Quarter: 2018Q2

REPORT INFORMATION
  Report Type: Spontaneous
  Country: US (occurrence: US)
  Receive Date: 20140605
  Receipt Date: 20180611
  Transmission Date: 20180711
  Serious: Yes (Hospitalization, Other)
  Sender: FDA-Public Use
  Company Number: PHHY2013US129467

PATIENT
  Age: 15 Year
  Sex: Female

DRUGS (6)
  1. ROBINUL [Suspect]
     Active Substance: GLYCOPYRROLATE
     Indication: PRODUCT USED FOR UNKNOWN INDICATION
     Dosage: UNK UKN, UNK
     Route: 065
  2. KEPPRA [Suspect]
     Active Substance: LEVETIRACETAM
     Indication: PRODUCT USED FOR UNKNOWN INDICATION
     Dosage: UNK UKN, UNK
     Route: 065
  3. TRILEPTAL [Suspect]
     Active Substance: OXCARBAZEPINE
     Indication: PRODUCT USED FOR UNKNOWN INDICATION
     Dosage: UNK UKN, UNK
     Route: 065
  4. LIORESAL [Suspect]
     Active Substance: BACLOFEN
     Indication: MUSCLE SPASTICITY
     Dosage: 362.1 UG, QD
     Route: 037
  5. LIORESAL [Suspect]
     Active Substance: BACLOFEN
     Dosage: 100 UG, QD
     Route: 037
     Dates: start: 20131105
  6. LIORESAL [Suspect]
     Active Substance: BACLOFEN
     Dosage: UNK UKN, UNK
     Route: 037

REACTIONS (13)
  - Implant site fibrosis [Unknown]
  - Muscle twitching [Recovered/Resolved]
  - Hypotonia [Recovered/Resolved]
  - Excessive granulation tissue [Unknown]
  - Aphasia [Recovered/Resolved]
  - Device occlusion [Unknown]
  - Complication associated with device [Unknown]
  - Facial asymmetry [Recovered/Resolved]
  - Seizure [Recovered/Resolved]
  - Dyspnoea [Recovered/Resolved]
  - Muscle spasticity [Unknown]
  - Muscle tightness [Recovered/Resolved]
  - Drug withdrawal syndrome [Recovered/Resolved]

NARRATIVE: CASE EVENT DATE: 20131104
